FAERS Safety Report 21394347 (Version 1)
Quarter: 2022Q3

REPORT INFORMATION
  Report Type: Spontaneous
  Country: DE (occurrence: DE)
  Receive Date: 20220930
  Receipt Date: 20220930
  Transmission Date: 20221027
  Serious: Yes (Hospitalization)
  Sender: FDA-Public Use
  Company Number: DE-ADRED-05963-01

PATIENT
  Age: 95 Year
  Sex: Male

DRUGS (17)
  1. PREDNISOLONE [Suspect]
     Active Substance: PREDNISOLONE
     Indication: Product used for unknown indication
     Dosage: 1 DOSAGE FORMS DAILY; 5 MG, 0-1-0-0, UNIT DOSE : 1 DF , FREQUENCY : OD
  2. TORSEMIDE [Suspect]
     Active Substance: TORSEMIDE
     Indication: Product used for unknown indication
     Dosage: 2 DOSAGE FORMS DAILY; 5 MG, 0-1-1-0, UNIT DOSE : 1 DF , FREQUENCY : BD
  3. MOVICOL [Suspect]
     Active Substance: POLYETHYLENE GLYCOL 3350\POTASSIUM CHLORIDE\SODIUM BICARBONATE\SODIUM CHLORIDE
     Indication: Product used for unknown indication
     Dosage: 3 TIMES A WEEK
  4. SODIUM PICOSULFATE [Suspect]
     Active Substance: SODIUM PICOSULFATE
     Indication: Product used for unknown indication
     Dosage: NEEDS, DROPS, LAXOBERAL LAXATIVE DROPS 7.5MG/ML
  5. ALBUTEROL [Concomitant]
     Active Substance: ALBUTEROL
     Indication: Product used for unknown indication
     Dosage: DEMAND, METERED DOSE INHALER
  6. LEVOTHYROXINE SODIUM [Concomitant]
     Active Substance: LEVOTHYROXINE SODIUM
     Indication: Product used for unknown indication
     Dosage: 1 DOSAGE FORMS DAILY; 50 MCG, 0-1-0-0, UNIT DOSE : 1 DF , FREQUENCY : OD
  7. GLYCOPYRRONIUM\INDACATEROL [Concomitant]
     Active Substance: GLYCOPYRRONIUM\INDACATEROL
     Indication: Product used for unknown indication
     Dosage: 1 DOSAGE FORMS DAILY; 85|43 MCG, 0-1-0-0, UNIT DOSE : 1 DF , FREQUENCY : OD , ULTIBRO BREEZHALER 85
  8. SULTANOL [Concomitant]
     Active Substance: ALBUTEROL SULFATE
     Indication: Product used for unknown indication
     Dosage: 10 DOSAGE FORMS DAILY; 5-0-5-0, DROP, UNIT DOSE : 5 DF , FREQUENCY : BD
  9. QUININE SULFATE [Concomitant]
     Active Substance: QUININE SULFATE
     Indication: Product used for unknown indication
     Dosage: 1 DOSAGE FORMS DAILY; 200 MG, 0-0-0-1, UNIT DOSE : 1 DF , FREQUENCY : OD
  10. AMLODIPINE [Concomitant]
     Active Substance: AMLODIPINE BESYLATE
     Indication: Product used for unknown indication
     Dosage: .5 DOSAGE FORMS DAILY; 5 MG, 0-0.5-0-0, UNIT DOSE : 0.5 DF , FREQUENCY : OD
  11. ATROVENT [Concomitant]
     Active Substance: IPRATROPIUM BROMIDE
     Indication: Product used for unknown indication
     Dosage: 2 DOSAGE FORMS DAILY; 250 MCG/2ML, 1-0-1-0, SOLUTION FOR INHALATION, UNIT DOSE : 1 DF , FREQUENCY :
  12. FLUPREDNIDENE ACETATE\MICONAZOLE NITRATE [Concomitant]
     Active Substance: FLUPREDNIDENE ACETATE\MICONAZOLE NITRATE
     Indication: Product used for unknown indication
     Dosage: NEED, OINTMENT
  13. OXYGEN [Concomitant]
     Active Substance: OXYGEN
     Indication: Product used for unknown indication
     Dosage: 4 DOSAGE FORMS DAILY; 2 LITER, 1-1-1-1, SAUERSTOFF INHALATIONSDOSE, INHALER, UNIT DOSE : 1 DF , FREQ
  14. FEBUXOSTAT [Concomitant]
     Active Substance: FEBUXOSTAT
     Indication: Product used for unknown indication
     Dosage: 1 DOSAGE FORMS DAILY; 80 MG, 0-1-0-0, UNIT DOSE : 1 DF , FREQUENCY : OD
  15. METAMIZOLE [Concomitant]
     Active Substance: METAMIZOLE
     Indication: Product used for unknown indication
     Dosage: NEEDS, DROPS
  16. ASPIRIN [Concomitant]
     Active Substance: ASPIRIN
     Indication: Product used for unknown indication
     Dosage: 1 DOSAGE FORMS DAILY; 100 MG, 0-1-0-0, UNIT DOSE : 1 DF , FREQUENCY : OD
  17. FERROUS SULFATE [Concomitant]
     Active Substance: FERROUS SULFATE
     Indication: Product used for unknown indication
     Dosage: 1 DOSAGE FORMS DAILY; 0-0-0-1, UNIT DOSE : 1 DF , FREQUENCY : OD

REACTIONS (6)
  - General physical health deterioration [Unknown]
  - Tachycardia [Unknown]
  - Cachexia [Unknown]
  - Dehydration [Unknown]
  - General physical health deterioration [Unknown]
  - Tachypnoea [Unknown]
